FAERS Safety Report 5693451-9 (Version None)
Quarter: 2008Q2

REPORT INFORMATION
  Report Type: 
  Country: None (occurrence: None)
  Receive Date: 20080401
  Receipt Date: 20080401
  Transmission Date: 20081010
  Serious: No
  Sender: FDA-Public Use
  Company Number: None

PATIENT
  Age: 22 Year
  Sex: Male
  Weight: 70.3075 kg

DRUGS (1)
  1. ZYRTEC [Suspect]
     Indication: MULTIPLE ALLERGIES
     Dosage: 10MG TABLET 1 DAILY PO
     Route: 048

REACTIONS (4)
  - DRUG DEPENDENCE [None]
  - EYE PRURITUS [None]
  - PRURITUS [None]
  - WITHDRAWAL SYNDROME [None]
